FAERS Safety Report 9853564 (Version 2)
Quarter: 2014Q1

REPORT INFORMATION
  Report Type: Spontaneous
  Country: US (occurrence: US)
  Receive Date: 20140129
  Receipt Date: 20140328
  Transmission Date: 20141002
  Serious: No
  Sender: FDA-Public Use
  Company Number: US-TEVA-459262USA

PATIENT
  Age: 29 Year
  Sex: Female
  Weight: 55.39 kg

DRUGS (1)
  1. PARAGARD 380A [Suspect]
     Indication: CONTRACEPTION
     Route: 015
     Dates: start: 20130917, end: 20140124

REACTIONS (4)
  - Device expulsion [Recovered/Resolved]
  - Vaginal odour [Unknown]
  - Vaginal discharge [Recovered/Resolved]
  - Bacterial vaginosis [Unknown]
